FAERS Safety Report 8778404 (Version 2)
Quarter: 2012Q4

REPORT INFORMATION
  Report Type: 
  Country: IT (occurrence: IT)
  Receive Date: 20120911
  Receipt Date: 20120920
  Transmission Date: 20130627
  Serious: Yes (Hospitalization)
  Sender: FDA-Public Use
  Company Number: IT-009507513-1209ITA002855

PATIENT
  Age: 29 Year
  Sex: Female

DRUGS (3)
  1. MIRTAZAPINE [Suspect]
     Indication: INTENTIONAL SELF-INJURY
     Dosage: 600 mg, Once
     Route: 048
     Dates: start: 20120904, end: 20120904
  2. XANAX [Suspect]
     Indication: INTENTIONAL SELF-INJURY
     Dosage: 10 mg in one day
     Route: 048
     Dates: start: 20120904, end: 20120904
  3. DEPAKIN [Suspect]
     Indication: INTENTIONAL SELF-INJURY
     Dosage: 5000 mg in one day
     Route: 048
     Dates: start: 20120904, end: 20120904

REACTIONS (4)
  - Intentional self-injury [Recovering/Resolving]
  - Overdose [Recovering/Resolving]
  - Drug abuse [Recovering/Resolving]
  - Sopor [Recovering/Resolving]
